FAERS Safety Report 18430145 (Version 2)
Quarter: 2020Q4

REPORT INFORMATION
  Report Type: Other
  Country: ZA (occurrence: ZA)
  Receive Date: 20201026
  Receipt Date: 20201101
  Transmission Date: 20210114
  Serious: Yes (Other)
  Sender: FDA-Public Use
  Company Number: ZA-ROCHE-2633244

PATIENT
  Age: 63 Year
  Sex: Female

DRUGS (1)
  1. ACTEMRA [Suspect]
     Active Substance: TOCILIZUMAB
     Indication: RHEUMATOID ARTHRITIS
     Dosage: MONTHLY DOSE: 648 MG?MOST RECENT INFUSIONS PRIOR TO ADVERSE EVENT (AE) INCLUDES DEC-2019, JAN-2020,
     Route: 058
     Dates: start: 201802

REACTIONS (4)
  - Chemotherapy [Unknown]
  - Tooth abscess [Unknown]
  - Breast cancer [Not Recovered/Not Resolved]
  - Seroma [Unknown]

NARRATIVE: CASE EVENT DATE: 20200328
